FAERS Safety Report 7153273 (Version 1)
Quarter: 2020Q3

REPORT INFORMATION
  Report Type: Spontaneous
  Country: DE (occurrence: DE)
  Receive Date: 20091020
  Receipt Date: 20091020
  Transmission Date: 20201105
  Serious: Yes (Life-Threatening)
  Sender: FDA-Public Use
  Company Number: DE-ROCHE-662305

PATIENT
  Age: 90 Year
  Sex: Female
  Weight: 78 kg

DRUGS (1)
  1. IBANDRONIC ACID. [Suspect]
     Active Substance: IBANDRONIC ACID
     Indication: CANCER PAIN
     Dosage: INTRAVENOUS (NOS) FORM: INFUSION FREQUENCY: ONCE
     Route: 042
     Dates: start: 20090515, end: 20090515

REACTIONS (4)
  - Somnolence [Not Recovered/Not Resolved]
  - Hyperkalaemia [Not Recovered/Not Resolved]
  - Acute kidney injury [Not Recovered/Not Resolved]
  - Blood creatinine increased [Not Recovered/Not Resolved]

NARRATIVE: CASE EVENT DATE: 20090518
